FAERS Safety Report 21967888 (Version 4)
Quarter: 2023Q1

REPORT INFORMATION
  Report Type: Spontaneous
  Country: US (occurrence: US)
  Receive Date: 20230208
  Receipt Date: 20230323
  Transmission Date: 20230418
  Serious: No
  Sender: FDA-Public Use
  Company Number: US-PFIZER INC-202300053755

PATIENT
  Age: 68 Year
  Sex: Male
  Weight: 99.773 kg

DRUGS (6)
  1. CIBINQO [Suspect]
     Active Substance: ABROCITINIB
     Indication: Eczema
     Dosage: 100 MG, 1X/DAY
     Dates: start: 202212
  2. FLUOXETINE [Concomitant]
     Active Substance: FLUOXETINE HYDROCHLORIDE
     Dosage: 40 MG, 2X/DAY (1 CAPSULE BID IN THE MORNING)
  3. HYDROXYZINE HYDROCHLORIDE [Concomitant]
     Active Substance: HYDROXYZINE HYDROCHLORIDE
     Dosage: 10 MG
  4. TAMSULOSIN [Concomitant]
     Active Substance: TAMSULOSIN
     Dosage: 0.4 MG
  5. PANTOPRAZOLE [Concomitant]
     Active Substance: PANTOPRAZOLE
     Dosage: 40 MG, DAILY
  6. MODERNA COVID-19 VACCINE [Concomitant]
     Active Substance: ELASOMERAN
     Dosage: UNK

REACTIONS (12)
  - Hypersomnia [Not Recovered/Not Resolved]
  - Fatigue [Not Recovered/Not Resolved]
  - Asthenia [Unknown]
  - Pollakiuria [Unknown]
  - Respiratory tract congestion [Unknown]
  - Cough [Unknown]
  - Emphysema [Unknown]
  - Condition aggravated [Unknown]
  - Discomfort [Unknown]
  - Mobility decreased [Not Recovered/Not Resolved]
  - Pruritus [Unknown]
  - Feeling jittery [Unknown]

NARRATIVE: CASE EVENT DATE: 20221201
